FAERS Safety Report 9744432 (Version 2)
Quarter: 2013Q4

REPORT INFORMATION
  Report Type: Spontaneous
  Country: US (occurrence: US)
  Receive Date: 20131210
  Receipt Date: 20131210
  Transmission Date: 20140711
  Serious: Yes (Disabling)
  Sender: FDA-Public Use
  Company Number: US-GE HEALTHCARE MEDICAL DIAGNOSTICS-OSCN-PR-1002S-0040

PATIENT
  Age: 38 Year
  Sex: Female
  Weight: 76 kg

DRUGS (4)
  1. OMNISCAN [Suspect]
     Indication: CATHETER PLACEMENT
     Dates: start: 20030828, end: 20030828
  2. GADOLINIUM (UNSPECIFIED) [Suspect]
     Indication: CATHETER PLACEMENT
     Dates: start: 20030828
  3. MAGNEVIST [Suspect]
     Indication: CATHETER PLACEMENT
     Dates: start: 20060425, end: 20060425
  4. COUMADIN [Concomitant]

REACTIONS (1)
  - Nephrogenic systemic fibrosis [Not Recovered/Not Resolved]
